FAERS Safety Report 7701406-5 (Version None)
Quarter: 2011Q3

REPORT INFORMATION
  Report Type: 
  Country: None (occurrence: None)
  Receive Date: 20110819
  Receipt Date: 20110819
  Transmission Date: 20111222
  Serious: Yes (Hospitalization)
  Sender: FDA-Public Use
  Company Number: None

PATIENT
  Age: 53 Year
  Sex: Female

DRUGS (1)
  1. ATENOLOL [Suspect]
     Dosage: 100 MG PO DAILY
     Route: 048
     Dates: start: 20070101, end: 20110530

REACTIONS (3)
  - NAUSEA [None]
  - DIZZINESS [None]
  - INSOMNIA [None]
